FAERS Safety Report 15481681 (Version 7)
Quarter: 2019Q2

REPORT INFORMATION
  Report Type: Spontaneous
  Country: ES (occurrence: ES)
  Receive Date: 20181010
  Receipt Date: 20190401
  Transmission Date: 20190711
  Serious: Yes (Other)
  Sender: FDA-Public Use
  Company Number: ES-AUROBINDO-AUR-APL-2018-049255

PATIENT

DRUGS (1)
  1. OMEPRAZOLE. [Suspect]
     Active Substance: OMEPRAZOLE
     Indication: PROPHYLAXIS
     Dosage: 20 MILLIGRAM, DAILY (EVERY 6 TO 8 HOURS), ERRONEOUS THERAPEUTIC INTENTION
     Route: 065

REACTIONS (8)
  - Symmetrical drug-related intertriginous and flexural exanthema [Recovered/Resolved]
  - Intentional product misuse [Recovered/Resolved]
  - Skin lesion [Recovered/Resolved]
  - Toxic skin eruption [Recovered/Resolved]
  - Intentional overdose [Recovered/Resolved]
  - Skin toxicity [Recovered/Resolved]
  - Drug abuse [Unknown]
  - Rash maculo-papular [Recovered/Resolved]
